FAERS Safety Report 5467256-8 (Version None)
Quarter: 2007Q3

REPORT INFORMATION
  Report Type: 
  Country: None (occurrence: None)
  Receive Date: 20070925
  Receipt Date: 20070920
  Transmission Date: 20080115
  Serious: Yes (Life-Threatening, Hospitalization)
  Sender: FDA-Public Use
  Company Number: PHHO2007FR15720

PATIENT
  Age: 57 Year
  Sex: Female
  Weight: 43 kg

DRUGS (5)
  1. RAD [Suspect]
     Indication: HEART TRANSPLANT
     Dosage: 2.5 MG, BID
     Route: 048
  2. ROVALCYTE [Concomitant]
  3. RANIPLEX [Concomitant]
  4. BACTRIM [Concomitant]
  5. NEORAL [Suspect]
     Dosage: 100 MG, BID

REACTIONS (1)
  - LEUKOPENIA [None]
